FAERS Safety Report 4916741-3 (Version None)
Quarter: 2006Q1

REPORT INFORMATION
  Report Type: 
  Country: None (occurrence: None)
  Receive Date: 20060214
  Receipt Date: 20060201
  Transmission Date: 20060701
  Serious: Yes (Death, Hospitalization, Other)
  Sender: FDA-Public Use
  Company Number: 2006012873

PATIENT
  Age: 85 Year
  Sex: Male
  Weight: 44.7 kg

DRUGS (8)
  1. VFEND [Suspect]
     Indication: FUNGAEMIA
     Dosage: SEE IMAGE
     Route: 042
     Dates: start: 20051207, end: 20051207
  2. VFEND [Suspect]
     Indication: FUNGAEMIA
     Dosage: SEE IMAGE
     Route: 042
     Dates: start: 20051208, end: 20060120
  3. PRODIF (FOSFLUCONAZOLE) [Concomitant]
  4. MICAFUNGIN (MICAFUNGIN) [Concomitant]
  5. MAXIPIME [Concomitant]
  6. MEROPEN (MEROPENEM) [Concomitant]
  7. CIPROFLOXACIN HYDROCHLORIDE [Concomitant]
  8. UNASYN [Concomitant]

REACTIONS (8)
  - BEDRIDDEN [None]
  - CARDIAC ARREST [None]
  - CEREBRAL INFARCTION [None]
  - CONDITION AGGRAVATED [None]
  - PNEUMONIA [None]
  - RENAL FAILURE ACUTE [None]
  - RESPIRATORY ARREST [None]
  - RESPIRATORY FAILURE [None]
